FAERS Safety Report 7219868-9 (Version None)
Quarter: 2011Q1

REPORT INFORMATION
  Report Type: 
  Country: None (occurrence: None)
  Receive Date: 20110111
  Receipt Date: 20110105
  Transmission Date: 20110831
  Serious: Yes (Death)
  Sender: FDA-Public Use
  Company Number: TW-BAXTER-2010BH027943

PATIENT
  Sex: Male

DRUGS (8)
  1. DIANEAL [Suspect]
     Route: 033
     Dates: start: 20100101
  2. DIANEAL [Suspect]
     Indication: PERITONEAL DIALYSIS
     Route: 033
     Dates: start: 20100101
  3. DIANEAL PD-2 W/ DEXTROSE 1.5% [Suspect]
     Indication: PERITONEAL DIALYSIS
     Route: 033
     Dates: start: 20100101
  4. DIANEAL [Suspect]
     Route: 033
     Dates: start: 20100101
  5. DIANEAL PD-2 W/ DEXTROSE 1.5% [Suspect]
     Route: 033
     Dates: start: 20100101
  6. DIANEAL [Suspect]
     Route: 033
     Dates: start: 20100101
  7. DIANEAL [Suspect]
     Route: 033
     Dates: start: 20100101
  8. DIANEAL [Suspect]
     Route: 033
     Dates: start: 20100101

REACTIONS (1)
  - CARDIAC FAILURE [None]
